FAERS Safety Report 11145310 (Version 1)
Quarter: 2015Q2

REPORT INFORMATION
  Report Type: Spontaneous
  Country: US (occurrence: US)
  Receive Date: 20150526
  Receipt Date: 20150526
  Transmission Date: 20150821
  Serious: Yes (Other)
  Sender: FDA-Public Use
  Company Number: US-PFIZER INC-2015171402

PATIENT
  Age: 73 Year
  Sex: Female
  Weight: 101 kg

DRUGS (1)
  1. LATANOPROST. [Suspect]
     Active Substance: LATANOPROST
     Dosage: 0.005% 2.5 MG, ONE EYE DROP IN EACH EYE AT NIGHT ONLY
     Route: 047

REACTIONS (3)
  - Vision blurred [Unknown]
  - Product quality issue [Unknown]
  - Cataract [Unknown]
